FAERS Safety Report 7902586-9 (Version None)
Quarter: 2011Q4

REPORT INFORMATION
  Report Type: 
  Country: None (occurrence: None)
  Receive Date: 20111108
  Receipt Date: 20111024
  Transmission Date: 20120403
  Serious: Yes (Hospitalization)
  Sender: FDA-Public Use
  Company Number: US-WATSON-2011-18611

PATIENT
  Age: 20 Year
  Sex: Male

DRUGS (12)
  1. MIDAZOLAM HCL [Suspect]
     Indication: ANAESTHESIA
  2. PROPOFOL [Suspect]
     Indication: ANAESTHESIA
  3. FENTANYL-100 [Suspect]
     Indication: ANAESTHESIA
     Dosage: FENTANYL-BUPIVACAINE 0.125% AT 20 UG-HR (MINUS 1) (TOTAL OF 89 MG)
  4. HYDROMORPHONE HCL [Suspect]
  5. EPHEDRINE SUL CAP [Suspect]
     Indication: ANAESTHESIA
  6. LIDOCAINE [Suspect]
     Indication: ANAESTHESIA
  7. SCOPOLAMINE [Suspect]
     Indication: ANAESTHESIA
  8. SEVOFLURANE [Suspect]
     Indication: ANAESTHESIA
  9. SUCCINYLCHOLINE CHLORIDE [Suspect]
     Indication: ANAESTHESIA
  10. FAMOTIDINE [Suspect]
     Indication: ANAESTHESIA
  11. ESMOLOL HCL [Suspect]
     Indication: ANAESTHESIA
  12. PHENYLEPHRINE HCL [Suspect]
     Indication: ANAESTHESIA

REACTIONS (4)
  - TACHYCARDIA [None]
  - HYPOTENSION [None]
  - ELECTROCARDIOGRAM ST SEGMENT ELEVATION [None]
  - HYPERTENSION [None]
